FAERS Safety Report 23947136 (Version 1)
Quarter: 2024Q2

REPORT INFORMATION
  Report Type: Spontaneous
  Country: CN (occurrence: CN)
  Receive Date: 20240606
  Receipt Date: 20240606
  Transmission Date: 20240716
  Serious: Yes (Hospitalization)
  Sender: FDA-Public Use
  Company Number: CN-Merck Healthcare KGaA-2024029326

PATIENT
  Sex: Male

DRUGS (3)
  1. ERBITUX [Suspect]
     Active Substance: CETUXIMAB
     Indication: Colon cancer
     Dosage: 800 MG, UNKNOWN
     Route: 065
     Dates: start: 20240527
  2. OXALIPLATIN [Concomitant]
     Active Substance: OXALIPLATIN
     Indication: Colon cancer
     Dosage: 200 MG, UNK
     Route: 065
     Dates: start: 20240527
  3. XELODA [Concomitant]
     Active Substance: CAPECITABINE
     Indication: Colon cancer
     Dosage: 1 G, UNKNOWN
     Route: 048
     Dates: start: 20240527

REACTIONS (8)
  - Urinary incontinence [Recovering/Resolving]
  - Respiratory rate increased [Recovering/Resolving]
  - Body temperature increased [Recovering/Resolving]
  - Heart rate increased [Recovering/Resolving]
  - Chills [Recovering/Resolving]
  - Asthenia [Recovering/Resolving]
  - Rash erythematous [Recovering/Resolving]
  - Off label use [Unknown]

NARRATIVE: CASE EVENT DATE: 20240527
